FAERS Safety Report 25007663 (Version 7)
Quarter: 2025Q2

REPORT INFORMATION
  Report Type: Spontaneous
  Country: CO (occurrence: CO)
  Receive Date: 20250225
  Receipt Date: 20250415
  Transmission Date: 20250717
  Serious: Yes (Other)
  Sender: SANOFI AVENTIS
  Company Number: CO-SA-2025SA049097

PATIENT
  Age: 84 Year
  Sex: Male
  Weight: 53.1 kg

DRUGS (10)
  1. LANTUS [Suspect]
     Active Substance: INSULIN GLARGINE
     Indication: Type 2 diabetes mellitus
     Route: 065
     Dates: start: 2020, end: 2023
  2. LANTUS [Suspect]
     Active Substance: INSULIN GLARGINE
     Dosage: 10 IU, QD
     Route: 058
     Dates: start: 20250202
  3. SEMAGLUTIDE [Concomitant]
     Active Substance: SEMAGLUTIDE
     Indication: Type 2 diabetes mellitus
     Route: 048
  4. METFORMIN [Concomitant]
     Active Substance: METFORMIN HYDROCHLORIDE
     Indication: Type 2 diabetes mellitus
     Route: 065
  5. ROSUVASTATIN [Concomitant]
     Active Substance: ROSUVASTATIN
     Indication: Blood cholesterol increased
     Dosage: 20 MG, QD
     Route: 048
  6. ROSUVASTATIN [Concomitant]
     Active Substance: ROSUVASTATIN
     Indication: Blood triglycerides increased
  7. LOSARTAN POTASSIUM [Concomitant]
     Active Substance: LOSARTAN POTASSIUM
     Indication: Hypertension
     Dosage: 50 MG, QOD
     Route: 048
  8. SITAGLIPTIN [Concomitant]
     Active Substance: SITAGLIPTIN
     Indication: Diabetes mellitus
     Dosage: 100 MG, QD
     Route: 048
  9. DAPAGLIFLOZIN PROPANEDIOL\METFORMIN HYDROCHLORIDE [Concomitant]
     Active Substance: DAPAGLIFLOZIN PROPANEDIOL\METFORMIN HYDROCHLORIDE
     Dosage: 1 DF, QD
  10. LINAGLIPTIN [Concomitant]
     Active Substance: LINAGLIPTIN
     Indication: Type 2 diabetes mellitus
     Dosage: 1 G/100.G 1 DOSE EVERY 1 DAY[ 5MG/1000MG]
     Route: 048

REACTIONS (15)
  - Skin cancer [Recovered/Resolved]
  - Diabetes mellitus inadequate control [Recovering/Resolving]
  - Injury associated with device [Recovered/Resolved]
  - Amnesia [Recovering/Resolving]
  - Anaemia [Not Recovered/Not Resolved]
  - Cognitive disorder [Recovering/Resolving]
  - Fatigue [Unknown]
  - Melanocytic naevus [Recovered/Resolved]
  - Pain in extremity [Recovering/Resolving]
  - Arthralgia [Recovering/Resolving]
  - Blood glucose increased [Recovering/Resolving]
  - Skin discolouration [Recovered/Resolved]
  - Vertigo [Not Recovered/Not Resolved]
  - Head injury [Recovered/Resolved]
  - Drug dose omission by device [Recovering/Resolving]

NARRATIVE: CASE EVENT DATE: 20210101
